FAERS Safety Report 11118060 (Version 1)
Quarter: 2015Q2

REPORT INFORMATION
  Report Type: Spontaneous
  Country: US (occurrence: None)
  Receive Date: 20150515
  Receipt Date: 20150515
  Transmission Date: 20150821
  Serious: No
  Sender: FDA-Public Use
  Company Number: None

PATIENT
  Age: 59 Year
  Sex: Female

DRUGS (14)
  1. AMPYRA [Suspect]
     Active Substance: DALFAMPRIDINE
     Indication: MULTIPLE SCLEROSIS
     Route: 048
     Dates: start: 20110404
  2. MELOXICAM. [Concomitant]
     Active Substance: MELOXICAM
  3. COPAXONE [Concomitant]
     Active Substance: GLATIRAMER ACETATE
  4. CRANBERRY CONCENTRATE ORAL [Concomitant]
  5. VITAMIN D3 1000U [Concomitant]
  6. CULTURELLE PROBIOTICS [Concomitant]
  7. AVAPRO [Concomitant]
     Active Substance: IRBESARTAN
  8. FERROUS SULFATE [Concomitant]
     Active Substance: FERROUS SULFATE\FERROUS SULFATE, DRIED
  9. BISACODYL. [Concomitant]
     Active Substance: BISACODYL
  10. MULTIVITAMIN [Concomitant]
     Active Substance: VITAMINS
  11. DITROPAN [Concomitant]
     Active Substance: OXYBUTYNIN CHLORIDE
  12. ACTONEL [Concomitant]
     Active Substance: RISEDRONATE SODIUM
  13. LOSARTAN [Concomitant]
     Active Substance: LOSARTAN
  14. FAMOTIDINE. [Concomitant]
     Active Substance: FAMOTIDINE

REACTIONS (1)
  - Laboratory test abnormal [None]

NARRATIVE: CASE EVENT DATE: 20150513
